FAERS Safety Report 22283930 (Version 1)
Quarter: 2023Q2

REPORT INFORMATION
  Report Type: Spontaneous
  Country: ES (occurrence: ES)
  Receive Date: 20230504
  Receipt Date: 20230504
  Transmission Date: 20230721
  Serious: Yes (Death)
  Sender: FDA-Public Use
  Company Number: ES-ROCHE-3331281

PATIENT
  Age: 61 Year
  Sex: Female

DRUGS (5)
  1. PACLITAXEL [Suspect]
     Active Substance: PACLITAXEL
     Indication: Breast cancer metastatic
     Dosage: ROA-20045000
     Route: 042
     Dates: start: 20210502, end: 20211201
  2. VINORELBINE [Suspect]
     Active Substance: VINORELBINE TARTRATE
     Indication: Breast cancer metastatic
     Dosage: ROA-20045000
     Route: 042
     Dates: start: 20220605, end: 20220701
  3. LAPATINIB [Suspect]
     Active Substance: LAPATINIB
     Indication: Breast cancer metastatic
     Dosage: UNIT DOSE: 1250 MG?ROA-20053000
     Route: 048
     Dates: start: 20220219, end: 20220520
  4. CAPECITABINE [Suspect]
     Active Substance: CAPECITABINE
     Indication: Breast cancer metastatic
     Dosage: UNITE DOSE: 1250 MG/M2?DOSAGE FORM: PDF-10219000: TABLET (UNCOATED, ORAL)?ROA-20053000
     Route: 048
     Dates: start: 20220219, end: 20220520
  5. DOXORUBICIN [Suspect]
     Active Substance: DOXORUBICIN
     Indication: Breast cancer metastatic
     Dosage: ROA-20045000
     Route: 042
     Dates: start: 20210213

REACTIONS (1)
  - Dyspnoea [Fatal]

NARRATIVE: CASE EVENT DATE: 20220731
